FAERS Safety Report 4815826-X (Version None)
Quarter: 2005Q4

REPORT INFORMATION
  Report Type: 
  Country: None (occurrence: None)
  Receive Date: 20051026
  Receipt Date: 20051010
  Transmission Date: 20060501
  Serious: Yes (Other)
  Sender: FDA-Public Use
  Company Number: USA0510110423

PATIENT
  Age: 61 Year
  Sex: Male

DRUGS (1)
  1. XIGRIS [Suspect]
     Indication: SEPSIS
     Dates: start: 20051006, end: 20051008

REACTIONS (4)
  - HAEMOGLOBIN ABNORMAL [None]
  - HAEMORRHAGE [None]
  - PLATELET COUNT ABNORMAL [None]
  - RENAL FAILURE [None]
